FAERS Safety Report 23347316 (Version 1)
Quarter: 2023Q4

REPORT INFORMATION
  Report Type: Report from Study
  Country: US (occurrence: US)
  Receive Date: 20231228
  Receipt Date: 20231228
  Transmission Date: 20240110
  Serious: Yes (Other)
  Sender: FDA-Public Use
  Company Number: US-TAIHOP-2023-007641

PATIENT
  Age: 60 Year
  Sex: Male
  Weight: 84.82 kg

DRUGS (1)
  1. LONSURF [Suspect]
     Active Substance: TIPIRACIL HYDROCHLORIDE\TRIFLURIDINE
     Indication: Rectal cancer
     Dosage: FROM MONDAY TO FRIDAY FOR ONE WEEK, FOLLOWED BY ONE WEEK REST/ ON MONDAY, WEDNESDAY, AND FRIDAY ONLY
     Route: 048
     Dates: start: 202302

REACTIONS (6)
  - Neuropathy peripheral [Unknown]
  - Fall [Unknown]
  - Lethargy [Unknown]
  - Cytopenia [Unknown]
  - Peroneal nerve palsy [Unknown]
  - Inappropriate schedule of product administration [Unknown]

NARRATIVE: CASE EVENT DATE: 20231001
